FAERS Safety Report 5278911-7 (Version None)
Quarter: 2007Q1

REPORT INFORMATION
  Report Type: 
  Country: None (occurrence: None)
  Receive Date: 20070328
  Receipt Date: 20070316
  Transmission Date: 20070707
  Serious: Yes (Other)
  Sender: FDA-Public Use
  Company Number: MX-JNJFOC-20070200042

PATIENT
  Sex: Male
  Weight: 60 kg

DRUGS (18)
  1. TMC125 [Suspect]
     Route: 048
  2. TMC125 [Suspect]
     Indication: HIV INFECTION
     Dosage: TEMPORARY STOP
     Route: 048
  3. PREZISTA [Suspect]
     Route: 048
  4. PREZISTA [Suspect]
     Indication: HIV INFECTION
     Route: 048
  5. RITONAVIR [Suspect]
     Route: 048
  6. RITONAVIR [Suspect]
     Indication: HIV INFECTION
     Route: 048
  7. CLINDAMYCIN [Suspect]
     Indication: TOXOPLASMOSIS PROPHYLAXIS
     Route: 048
  8. PYRIMETHAMINE TAB [Suspect]
     Indication: TOXOPLASMOSIS PROPHYLAXIS
     Route: 048
  9. FOLINIC ACID [Suspect]
     Indication: ADVERSE DRUG REACTION
     Route: 048
  10. ZIAGEN [Concomitant]
     Route: 048
  11. ZIAGEN [Concomitant]
     Indication: HIV INFECTION
     Route: 048
  12. EPIVIR [Concomitant]
     Route: 048
  13. EPIVIR [Concomitant]
     Indication: HIV INFECTION
     Route: 048
  14. TRIMETHOPRIM + SULFAMETHOXAZOLE [Concomitant]
     Indication: ANTIFUNGAL PROPHYLAXIS
     Route: 048
  15. LEVETIRACETAM [Concomitant]
     Route: 048
  16. CLONAZEPAM [Concomitant]
     Indication: HEMIPARESIS
     Route: 048
  17. CLONAZEPAM [Concomitant]
     Indication: HEMIPLEGIA
     Route: 048
  18. NAPROXEN [Concomitant]
     Indication: NASOPHARYNGITIS
     Route: 048

REACTIONS (2)
  - ALANINE AMINOTRANSFERASE INCREASED [None]
  - ASPARTATE AMINOTRANSFERASE INCREASED [None]
